FAERS Safety Report 6753905-0 (Version None)
Quarter: 2010Q2

REPORT INFORMATION
  Report Type: 
  Country: None (occurrence: None)
  Receive Date: 20100603
  Receipt Date: 20100523
  Transmission Date: 20101027
  Serious: Yes (Hospitalization)
  Sender: FDA-Public Use
  Company Number: CA-ELI_LILLY_AND_COMPANY-CA201005006618

PATIENT
  Age: 88 Year
  Sex: Female

DRUGS (4)
  1. FORTEO [Suspect]
     Indication: OSTEOPOROSIS
     Dosage: 20 UG, DAILY (1/D)
     Dates: start: 20100325, end: 20100403
  2. ANTIHYPERTENSIVES [Concomitant]
  3. CALCIUM CARBONATE [Concomitant]
  4. VITAMIN D [Concomitant]

REACTIONS (2)
  - DIZZINESS [None]
  - TREMOR [None]
